FAERS Safety Report 4709580-X (Version None)
Quarter: 2005Q3

REPORT INFORMATION
  Report Type: 
  Country: None (occurrence: None)
  Receive Date: 20050706
  Receipt Date: 20050706
  Transmission Date: 20060218
  Serious: Yes (Life-Threatening)
  Sender: FDA-Public Use
  Company Number: None

PATIENT
  Age: 67 Year
  Sex: Female
  Weight: 58.9676 kg

DRUGS (2)
  1. MUCINEX [Suspect]
     Indication: MULTIPLE ALLERGIES
     Dosage: 1200   TWICE A DAY    ORAL
     Route: 048
     Dates: start: 20040222, end: 20050703
  2. MUCINEX [Suspect]
     Indication: RESPIRATORY TRACT CONGESTION
     Dosage: 1200   TWICE A DAY    ORAL
     Route: 048
     Dates: start: 20040222, end: 20050703

REACTIONS (1)
  - HEART RATE INCREASED [None]
